FAERS Safety Report 4366161-8 (Version None)
Quarter: 2004Q2

REPORT INFORMATION
  Report Type: 
  Country: None (occurrence: None)
  Receive Date: 20040524
  Receipt Date: 20040510
  Transmission Date: 20050107
  Serious: No
  Sender: FDA-Public Use
  Company Number: 04P-167-0260827-00

PATIENT
  Age: 40 Year
  Sex: Male

DRUGS (4)
  1. VALPROATE SODIUM [Suspect]
     Indication: EPILEPSY
     Dosage: 1 GM, 1 IN 1 D, PER ORAL
     Route: 048
     Dates: start: 20030901, end: 20040401
  2. THIAMINE [Concomitant]
  3. B-KOMPLEX ^LECIVA^ [Concomitant]
  4. CLONAZEPAM [Concomitant]

REACTIONS (3)
  - EOSINOPHILIA [None]
  - PLEURAL EFFUSION [None]
  - PLEURISY [None]
